FAERS Safety Report 7341244-9 (Version None)
Quarter: 2011Q1

REPORT INFORMATION
  Report Type: 
  Country: None (occurrence: None)
  Receive Date: 20110309
  Receipt Date: 20110223
  Transmission Date: 20110831
  Serious: Yes (Hospitalization)
  Sender: FDA-Public Use
  Company Number: PHHY2011CA15722

PATIENT
  Sex: Male

DRUGS (1)
  1. ZOMETA [Suspect]
     Indication: PROSTATE CANCER
     Dosage: 4 MG, TIW
     Route: 042
     Dates: start: 20070417

REACTIONS (4)
  - RENAL FAILURE [None]
  - VOMITING [None]
  - URINARY TRACT INFECTION [None]
  - DEHYDRATION [None]
